FAERS Safety Report 7737566-X (Version None)
Quarter: 2011Q3

REPORT INFORMATION
  Report Type: 
  Country: None (occurrence: None)
  Receive Date: 20110908
  Receipt Date: 20110906
  Transmission Date: 20111222
  Serious: Yes (Other)
  Sender: FDA-Public Use
  Company Number: US-PFIZER INC-2011194140

PATIENT
  Sex: Female
  Weight: 100 kg

DRUGS (3)
  1. CHANTIX [Suspect]
     Indication: SMOKING CESSATION THERAPY
     Dosage: UNK
  2. PAXIL [Suspect]
     Indication: BIPOLAR DISORDER
     Dosage: UNK
  3. SERTRALINE HYDROCHLORIDE [Suspect]
     Indication: BIPOLAR DISORDER
     Dosage: TWO TABLETS OF 100 MG, DAILY AT BED TIM

REACTIONS (3)
  - CHRONIC OBSTRUCTIVE PULMONARY DISEASE [None]
  - EMPHYSEMA [None]
  - MOOD SWINGS [None]
